FAERS Safety Report 26146372 (Version 4)
Quarter: 2025Q4

REPORT INFORMATION
  Report Type: Spontaneous
  Country: JP (occurrence: JP)
  Receive Date: 20251211
  Receipt Date: 20251219
  Transmission Date: 20260117
  Serious: Yes (Hospitalization, Other)
  Sender: MERCK SHARP & DOHME LLC
  Company Number: JP-MSD-M2023-10489

PATIENT
  Age: 77 Year
  Sex: Male

DRUGS (3)
  1. KEYTRUDA [Suspect]
     Active Substance: PEMBROLIZUMAB
     Indication: Renal cell carcinoma stage IV
     Dosage: DOSE DESCRIPTION : 200 MILLIGRAM, Q3W?DAILY DOSE : 9.4 MILLIGRAM?REGIMEN DOSE : 200  MILLIGRAM
     Route: 041
     Dates: start: 20230309
  2. LENVATINIB MESYLATE [Suspect]
     Active Substance: LENVATINIB MESYLATE
     Indication: Renal cell carcinoma stage IV
     Dosage: DOSE DESCRIPTION : 20 MILLIGRAM, 5 X PER WEEK?DAILY DOSE : 20 MILLIGRAM?CONCENTRATION: 10 MILLIGR...
     Route: 048
     Dates: start: 20230309, end: 20230721
  3. LENVATINIB MESYLATE [Suspect]
     Active Substance: LENVATINIB MESYLATE
     Indication: Renal cell carcinoma stage IV
     Dosage: DOSE DESCRIPTION : 14 MILLIGRAM, 5 X PER WEEK?DAILY DOSE : 9.996 MILLIGRAM?REGIMEN DOSE : 14  MIL...
     Route: 048
     Dates: start: 20230907

REACTIONS (9)
  - Malignant neoplasm progression [Unknown]
  - Immune-mediated hypothyroidism [Recovering/Resolving]
  - Delirium [Recovered/Resolved]
  - Gait disturbance [Recovered/Resolved]
  - Hypercalcaemia [Recovered/Resolved]
  - Hyperthyroidism [Recovering/Resolving]
  - Hepatic function abnormal [Recovered/Resolved]
  - Hypertension [Recovered/Resolved]
  - Therapy partial responder [Unknown]

NARRATIVE: CASE EVENT DATE: 20230101
